FAERS Safety Report 9009700 (Version 1)
Quarter: 2013Q1

REPORT INFORMATION
  Report Type: Spontaneous
  Country: FR (occurrence: FR)
  Receive Date: 20130110
  Receipt Date: 20130110
  Transmission Date: 20140127
  Serious: Yes (Other)
  Sender: FDA-Public Use
  Company Number: FR-PFIZER INC-2013002017

PATIENT
  Age: 26 Year
  Sex: Female

DRUGS (2)
  1. RHINADVIL [Suspect]
     Indication: NASOPHARYNGITIS
     Dosage: 1 DF, 2X/DAY, ONE IN THE MORNING, ONE IN THE EVENING
     Route: 048
     Dates: start: 20120909, end: 20120909
  2. MINESSE [Suspect]
     Indication: ORAL CONTRACEPTION
     Dosage: UNK
     Route: 048

REACTIONS (1)
  - Colitis ischaemic [Recovered/Resolved]
